FAERS Safety Report 10744227 (Version 1)
Quarter: 2015Q1

REPORT INFORMATION
  Report Type: Spontaneous
  Country: US (occurrence: None)
  Receive Date: 20150126
  Receipt Date: 20150126
  Transmission Date: 20150721
  Serious: Yes (Hospitalization)
  Sender: FDA-Public Use
  Company Number: None

PATIENT
  Age: 56 Year
  Sex: Female
  Weight: 85.28 kg

DRUGS (1)
  1. SIMVASTATIN. [Suspect]
     Active Substance: SIMVASTATIN
     Indication: BLOOD CHOLESTEROL INCREASED
     Dosage: 1 PILL AT BEDTIME TAKEN BY MOUTH
     Route: 048
     Dates: start: 20141015, end: 20150124

REACTIONS (9)
  - Chest discomfort [None]
  - Dehydration [None]
  - Tinnitus [None]
  - Headache [None]
  - Discomfort [None]
  - Gastrooesophageal reflux disease [None]
  - Pruritus [None]
  - Feeling abnormal [None]
  - Loss of consciousness [None]

NARRATIVE: CASE EVENT DATE: 20141217
